FAERS Safety Report 8308695-7 (Version None)
Quarter: 2012Q2

REPORT INFORMATION
  Report Type: 
  Country: None (occurrence: None)
  Receive Date: 20120421
  Receipt Date: 20120421
  Transmission Date: 20120825
  Serious: Yes (Other)
  Sender: FDA-Public Use
  Company Number: None

PATIENT
  Sex: Male

DRUGS (1)
  1. SINGULAIR [Suspect]
     Indication: ASTHMA
     Dosage: 10MG 8 PM ORAL
     Route: 048
     Dates: start: 20090501, end: 20100201

REACTIONS (2)
  - AGGRESSION [None]
  - MENTAL STATUS CHANGES [None]
